FAERS Safety Report 22193093 (Version 1)
Quarter: 2023Q2

REPORT INFORMATION
  Report Type: Spontaneous
  Country: US (occurrence: None)
  Receive Date: 20230410
  Receipt Date: 20230410
  Transmission Date: 20230721
  Serious: No
  Sender: FDA-Public Use
  Company Number: None

PATIENT
  Age: 77 Year
  Sex: Female
  Weight: 71.21 kg

DRUGS (12)
  1. VERZENIO [Suspect]
     Active Substance: ABEMACICLIB
     Indication: Breast cancer female
     Dosage: FREQUENCY : TWICE A DAY;?
     Route: 048
     Dates: start: 202203
  2. AMLODIPINE [Concomitant]
  3. ATROVASTATIN [Concomitant]
  4. CLONIDINE [Concomitant]
  5. FOLIC ACID [Concomitant]
     Active Substance: FOLIC ACID
  6. HEPARIN [Concomitant]
  7. NORCO [Concomitant]
     Active Substance: ACETAMINOPHEN\HYDROCODONE BITARTRATE
  8. HYDROXYZINE [Concomitant]
  9. ISOSORBIDE [Concomitant]
     Active Substance: ISOSORBIDE
  10. LETROZOLE [Concomitant]
     Active Substance: LETROZOLE
  11. LISINOPRIL [Concomitant]
  12. TAMSULOSIN [Concomitant]

REACTIONS (2)
  - Diarrhoea [None]
  - Vomiting [None]
